FAERS Safety Report 7913109-2 (Version None)
Quarter: 2011Q4

REPORT INFORMATION
  Report Type: 
  Country: None (occurrence: None)
  Receive Date: 20111114
  Receipt Date: 20111111
  Transmission Date: 20120403
  Serious: Yes (Life-Threatening, Other)
  Sender: FDA-Public Use
  Company Number: JP-B.I. PHARMACEUTICALS,INC./RIDGEFIELD-2011-BP-23977NB

PATIENT
  Age: 90 Year
  Sex: Male
  Weight: 32.1 kg

DRUGS (3)
  1. PRADAXA [Suspect]
     Dosage: 220 MG
     Route: 048
     Dates: start: 20110629, end: 20110929
  2. DILTIAZEM HCL [Concomitant]
     Dosage: 100 MG
     Route: 048
  3. FUROSEMIDE [Concomitant]
     Dosage: 20 MG
     Route: 065

REACTIONS (4)
  - GASTRIC ULCER HAEMORRHAGE [None]
  - ANAEMIA [None]
  - GASTRIC CANCER [None]
  - MELAENA [None]
